FAERS Safety Report 25260424 (Version 4)
Quarter: 2025Q3

REPORT INFORMATION
  Report Type: Spontaneous
  Country: US (occurrence: US)
  Receive Date: 20250501
  Receipt Date: 20250821
  Transmission Date: 20251020
  Serious: No
  Sender: BRISTOL-MYERS SQUIBB COMPANY
  Company Number: US-BRISTOL-MYERS SQUIBB COMPANY-2025-063594

PATIENT
  Age: 53 Year
  Sex: Female

DRUGS (2)
  1. ZEPOSIA [Suspect]
     Active Substance: OZANIMOD HYDROCHLORIDE
     Indication: Colitis ulcerative
     Route: 048
     Dates: start: 202412
  2. RINVOQ [Concomitant]
     Active Substance: UPADACITINIB
     Indication: Product used for unknown indication

REACTIONS (6)
  - Colitis ulcerative [Unknown]
  - Contraindicated product administered [Unknown]
  - Headache [Unknown]
  - Peripheral swelling [Unknown]
  - Chest pain [Unknown]
  - Costochondritis [Recovered/Resolved]

NARRATIVE: CASE EVENT DATE: 20241201
